FAERS Safety Report 21053582 (Version 1)
Quarter: 2022Q3

REPORT INFORMATION
  Report Type: Spontaneous
  Country: GB (occurrence: GB)
  Receive Date: 20220707
  Receipt Date: 20220707
  Transmission Date: 20221027
  Serious: Yes (Death, Other)
  Sender: FDA-Public Use
  Company Number: None

PATIENT
  Age: 43 Year
  Sex: Male
  Weight: 210 kg

DRUGS (3)
  1. APIXABAN [Suspect]
     Active Substance: APIXABAN
     Indication: Pulmonary embolism
     Dates: start: 20210309
  2. CITALOPRAM [Concomitant]
     Active Substance: CITALOPRAM HYDROBROMIDE
     Dates: start: 20210309
  3. LISINOPRIL [Concomitant]
     Active Substance: LISINOPRIL
     Dosage: TAKE ONE DAILY
     Dates: start: 20210309

REACTIONS (2)
  - Pulmonary embolism [Fatal]
  - Condition aggravated [Fatal]

NARRATIVE: CASE EVENT DATE: 20211001
